FAERS Safety Report 15037202 (Version 2)
Quarter: 2018Q3

REPORT INFORMATION
  Report Type: Spontaneous
  Country: IT (occurrence: JP)
  Receive Date: 20180620
  Receipt Date: 20180703
  Transmission Date: 20181010
  Serious: Yes (Death)
  Sender: FDA-Public Use
  Company Number: IT-LEADIANT BIOSCIENCES INC-2018STPI000387

PATIENT
  Age: 10 Year
  Sex: Female

DRUGS (9)
  1. CARNITOR [Suspect]
     Active Substance: LEVOCARNITINE
     Indication: MITOCHONDRIAL ENCEPHALOMYOPATHY
  2. THIAMINE [Suspect]
     Active Substance: THIAMINE
     Indication: MITOCHONDRIAL ENCEPHALOMYOPATHY
     Dosage: 1 MG/ DAY TO 1 G/DAY
     Route: 065
  3. BIOTIN [Concomitant]
     Active Substance: BIOTIN
     Indication: PRODUCT USED FOR UNKNOWN INDICATION
  4. MONOCAMIN [Suspect]
     Active Substance: CARNITINE CHLORIDE
     Indication: MITOCHONDRIAL ENCEPHALOMYOPATHY
     Route: 065
  5. CARNITOR [Suspect]
     Active Substance: LEVOCARNITINE
     Indication: MITOCHONDRIAL ENCEPHALOMYOPATHY
     Dosage: UNK UNK, UNK
     Route: 065
  6. LEVODOPA [Concomitant]
     Active Substance: LEVODOPA
     Indication: PRODUCT USED FOR UNKNOWN INDICATION
  7. ALPHA LIPOIC ACID [Concomitant]
     Active Substance: .ALPHA.-LIPOIC ACID
     Indication: PRODUCT USED FOR UNKNOWN INDICATION
  8. FAD                                /00519101/ [Concomitant]
     Indication: PRODUCT USED FOR UNKNOWN INDICATION
  9. CARNITOR [Suspect]
     Active Substance: LEVOCARNITINE
     Indication: MITOCHONDRIAL ENCEPHALOMYOPATHY

REACTIONS (1)
  - Mitochondrial encephalomyopathy [Fatal]
